FAERS Safety Report 9889010 (Version 1)
Quarter: 2014Q1

REPORT INFORMATION
  Report Type: Spontaneous
  Country: US (occurrence: None)
  Receive Date: 20140210
  Receipt Date: 20140210
  Transmission Date: 20141002
  Serious: Yes (Life-Threatening, Hospitalization)
  Sender: FDA-Public Use
  Company Number: None

PATIENT
  Age: 29 Year
  Sex: Male
  Weight: 104.33 kg

DRUGS (1)
  1. SERTRALINE [Suspect]
     Indication: DEPRESSIVE SYMPTOM
     Dosage: 1 PILL AS NEEDED TAKEN BY MOUTH
     Route: 048

REACTIONS (6)
  - Derealisation [None]
  - Mental disorder [None]
  - Personality disorder [None]
  - Drug ineffective [None]
  - Mental impairment [None]
  - Unevaluable event [None]
